FAERS Safety Report 7117877-1 (Version None)
Quarter: 2010Q4

REPORT INFORMATION
  Report Type: 
  Country: None (occurrence: None)
  Receive Date: 20101123
  Receipt Date: 20101113
  Transmission Date: 20110411
  Serious: Yes (Hospitalization, Other)
  Sender: FDA-Public Use
  Company Number: US-PAR PHARMACEUTICAL, INC-2010SCPR002300

PATIENT
  Age: 32 Year
  Sex: Female

DRUGS (1)
  1. IBUPROFEN [Suspect]
     Indication: MUSCULOSKELETAL PAIN
     Dosage: 800 MG, EVERY EIGHT HOURS
     Route: 065

REACTIONS (1)
  - EXTRADURAL HAEMATOMA [None]
